FAERS Safety Report 5452014-0 (Version None)
Quarter: 2007Q3

REPORT INFORMATION
  Report Type: 
  Country: None (occurrence: None)
  Receive Date: 20070912
  Receipt Date: 20070830
  Transmission Date: 20080115
  Serious: Yes (Hospitalization)
  Sender: FDA-Public Use
  Company Number: TKT01200700409

PATIENT
  Age: 10 Year
  Sex: Male

DRUGS (1)
  1. IDURSULFASE (IDURSULFASE) (0.5 MILLIGRAM (S) /KILOGRAM, CONCENTRATE FO [Suspect]
     Indication: MUCOPOLYSACCHARIDOSIS II
     Dosage: (0.55 MG/KG, 1 IN 1 WK), INTRAVENOUS DRIP
     Route: 041

REACTIONS (2)
  - FALL [None]
  - HUMERUS FRACTURE [None]
